FAERS Safety Report 6875324-9 (Version None)
Quarter: 2010Q3

REPORT INFORMATION
  Report Type: 
  Country: None (occurrence: None)
  Receive Date: 20100727
  Receipt Date: 20070712
  Transmission Date: 20110219
  Serious: Yes (Hospitalization, Other)
  Sender: FDA-Public Use
  Company Number: US-PFIZER INC-2006150177

PATIENT
  Sex: Female
  Weight: 52.2 kg

DRUGS (10)
  1. CELEBREX [Suspect]
     Indication: OSTEOARTHRITIS
     Dates: start: 20010530, end: 20031226
  2. VIOXX [Suspect]
     Indication: PAIN
     Dates: start: 19990901, end: 20030401
  3. ADVAIR DISKUS 100/50 [Concomitant]
  4. DICYCLOMINE [Concomitant]
  5. ACETAMINOPHEN AND HYDROCODONE BITARTRATE [Concomitant]
  6. HYOSCYAMINE [Concomitant]
  7. NAPROXEN [Concomitant]
     Dates: start: 20020204, end: 20050308
  8. PLAVIX [Concomitant]
     Dates: start: 20000123, end: 20030116
  9. PREMARIN [Concomitant]
     Dates: start: 19990717, end: 20040304
  10. WELLBUTRIN [Concomitant]

REACTIONS (3)
  - CEREBROVASCULAR ACCIDENT [None]
  - MYOCARDIAL INFARCTION [None]
  - TRANSIENT ISCHAEMIC ATTACK [None]
